FAERS Safety Report 5154126-8 (Version None)
Quarter: 2006Q4

REPORT INFORMATION
  Report Type: 
  Country: None (occurrence: None)
  Receive Date: 20061116
  Receipt Date: 20061116
  Transmission Date: 20070319
  Serious: Yes (Hospitalization)
  Sender: FDA-Public Use
  Company Number: None

PATIENT
  Age: 57 Year
  Sex: Male
  Weight: 94.8 kg

DRUGS (4)
  1. ENALAPRIL 2.5 MG TAB [Suspect]
  2. NIACIN (NIASPAN-KOS) [Concomitant]
  3. AMOXICILLIN 500/CLAV [Concomitant]
  4. DM 10/ GUAFENESN 100MG/5ML (ALC-F/SF)SYR [Concomitant]

REACTIONS (1)
  - COUGH [None]
